FAERS Safety Report 6317864-7 (Version None)
Quarter: 2009Q3

REPORT INFORMATION
  Report Type: 
  Country: None (occurrence: None)
  Receive Date: 20090821
  Receipt Date: 20090812
  Transmission Date: 20100115
  Serious: No
  Sender: FDA-Public Use
  Company Number: US-BAYER-200924207NA

PATIENT
  Age: 40 Year
  Sex: Female

DRUGS (1)
  1. MIRENA [Suspect]
     Indication: DRUG USE FOR UNKNOWN INDICATION
     Route: 015
     Dates: start: 20080321, end: 20090608

REACTIONS (3)
  - MENSTRUATION DELAYED [None]
  - MENSTRUATION IRREGULAR [None]
  - PREGNANCY WITH CONTRACEPTIVE DEVICE [None]
